FAERS Safety Report 13067479 (Version 2)
Quarter: 2017Q3

REPORT INFORMATION
  Report Type: Spontaneous
  Country: FR (occurrence: FR)
  Receive Date: 20161228
  Receipt Date: 20170707
  Transmission Date: 20171127
  Serious: Yes (Life-Threatening, Other)
  Sender: FDA-Public Use
  Company Number: FR-009507513-1612FRA010322

PATIENT
  Age: 49 Year
  Sex: Male

DRUGS (9)
  1. TERCIAN [Concomitant]
     Active Substance: CYAMEMAZINE
     Dosage: 100 DROPS, IF NEEDED
     Route: 048
  2. AKINETON [Concomitant]
     Active Substance: BIPERIDEN HYDROCHLORIDE
     Dosage: 4 MG, 1-0-0
     Route: 048
  3. LYSANXIA [Concomitant]
     Active Substance: PRAZEPAM
     Dosage: 40 DROPS, IF NEEDED
     Route: 048
  4. ZOLPIDEM [Concomitant]
     Active Substance: ZOLPIDEM\ZOLPIDEM TARTRATE
     Dosage: 10 MG, 0-0-1
     Route: 048
  5. NOZINAN [Concomitant]
     Active Substance: LEVOMEPROMAZINE
     Route: 048
  6. PROGLICEM [Suspect]
     Active Substance: DIAZOXIDE
     Indication: HYPOGLYCAEMIA
     Dosage: 150 MG, 2 PER DAY (1-0-1)
     Route: 048
     Dates: start: 20161118, end: 20161128
  7. RISPERIDONE. [Concomitant]
     Active Substance: RISPERIDONE
     Dosage: 2 MG, 1-1-1
     Route: 048
  8. ZUCLOPENTHIXOL [Concomitant]
     Active Substance: ZUCLOPENTHIXOL
     Dosage: 600 MG, EVERY 14 DAYS
     Route: 030
  9. OXAZEPAM. [Concomitant]
     Active Substance: OXAZEPAM
     Dosage: 2.5 MG, 1-0-0
     Route: 048

REACTIONS (1)
  - Thrombocytopenia [Unknown]

NARRATIVE: CASE EVENT DATE: 20161124
